FAERS Safety Report 7153400-3 (Version None)
Quarter: 2010Q4

REPORT INFORMATION
  Report Type: 
  Country: None (occurrence: None)
  Receive Date: 20101213
  Receipt Date: 20101201
  Transmission Date: 20110411
  Serious: Yes (Hospitalization)
  Sender: FDA-Public Use
  Company Number: A0779253A

PATIENT
  Age: 56 Year
  Sex: Male
  Weight: 81.8 kg

DRUGS (6)
  1. AVANDIA [Suspect]
     Indication: DIABETES MELLITUS
     Dosage: 4MG TWICE PER DAY
     Route: 048
     Dates: start: 20020101, end: 20030101
  2. ZOCOR [Concomitant]
  3. ACCUPRIL [Concomitant]
  4. ALLEGRA [Concomitant]
  5. GLUCOVANCE [Concomitant]
  6. INSULIN [Concomitant]

REACTIONS (4)
  - CARDIAC FAILURE CONGESTIVE [None]
  - CARDIOMEGALY [None]
  - EYE DISORDER [None]
  - MYOCARDIAL INFARCTION [None]
